FAERS Safety Report 18012224 (Version 1)
Quarter: 2020Q3

REPORT INFORMATION
  Report Type: Other
  Country: FR (occurrence: FR)
  Receive Date: 20200713
  Receipt Date: 20200713
  Transmission Date: 20201103
  Serious: Yes (Hospitalization)
  Sender: FDA-Public Use
  Company Number: FR-EMCURE PHARMACEUTICALS LTD-2020-EPL-000880

PATIENT
  Age: 66 Year
  Sex: Female
  Weight: 86 kg

DRUGS (12)
  1. SOLU?MEDROL [Suspect]
     Active Substance: METHYLPREDNISOLONE SODIUM SUCCINATE
     Dosage: 90 MILLIGRAM, DAILY
     Route: 042
     Dates: start: 20180712, end: 20180715
  2. ALKERAN [Suspect]
     Active Substance: MELPHALAN
     Dosage: 280 MILLIGRAM, DAILY
     Route: 042
     Dates: start: 20180716, end: 20180716
  3. ETOPOSIDE TEVA [Suspect]
     Active Substance: ETOPOSIDE
     Indication: B-CELL LYMPHOMA
     Dosage: 400 MILLIGRAM, DAILY
     Route: 042
     Dates: start: 20180712, end: 20180715
  4. CYTARABINE SANDOZ [Suspect]
     Active Substance: CYTARABINE
     Indication: B-CELL LYMPHOMA
     Dosage: 800 MILLIGRAM, DAILY
     Route: 042
     Dates: start: 20180712, end: 20180715
  5. BICNU [Suspect]
     Active Substance: CARMUSTINE
     Indication: B-CELL LYMPHOMA
     Dosage: 1200 MILLIGRAM, DAILY
     Route: 042
     Dates: start: 20180712, end: 20180712
  6. ALKERAN [Suspect]
     Active Substance: MELPHALAN
     Indication: B-CELL LYMPHOMA
     Dosage: 90 MILLIGRAM, DAILY
     Route: 042
     Dates: start: 20180712, end: 20180715
  7. EMEND [Concomitant]
     Active Substance: APREPITANT
     Dosage: UNK
  8. BICNU [Suspect]
     Active Substance: CARMUSTINE
     Dosage: 90 MILLIGRAM, DAILY
     Route: 042
     Dates: start: 20180712, end: 20180715
  9. ZOPHREN [Concomitant]
     Active Substance: ONDANSETRON
     Dosage: UNK
  10. ALKERAN [Suspect]
     Active Substance: MELPHALAN
     Dosage: 280 MILLIGRAM, DAILY
     Route: 042
     Dates: start: 20180716, end: 20180716
  11. NEULASTA [Concomitant]
     Active Substance: PEGFILGRASTIM
     Dosage: BACTERIA / ESCHERICHIA COLI
  12. SOLU?MEDROL [Suspect]
     Active Substance: METHYLPREDNISOLONE SODIUM SUCCINATE
     Indication: B-CELL LYMPHOMA
     Dosage: 90 MILLIGRAM, DAILY
     Route: 042
     Dates: start: 20180712, end: 20180715

REACTIONS (3)
  - Mucosal inflammation [Recovered/Resolved]
  - Diarrhoea [Recovered/Resolved]
  - Bone marrow failure [Recovered/Resolved]

NARRATIVE: CASE EVENT DATE: 20180720
